FAERS Safety Report 6240288-8 (Version None)
Quarter: 2009Q2

REPORT INFORMATION
  Report Type: 
  Country: None (occurrence: None)
  Receive Date: 20090623
  Receipt Date: 20080602
  Transmission Date: 20091009
  Serious: No
  Sender: FDA-Public Use
  Company Number: US-ASTRAZENECA-2008UW11171

PATIENT
  Age: 57 Year
  Sex: Female
  Weight: 79.4 kg

DRUGS (6)
  1. PULMICORT FLEXHALER [Suspect]
     Indication: ASTHMA
     Route: 055
  2. LODINE XL [Concomitant]
  3. ASCORBIC ACID [Concomitant]
  4. FISH OIL [Concomitant]
  5. CALCIUM WITH VITAMIN D [Concomitant]
  6. MULTI-VITAMIN [Concomitant]

REACTIONS (1)
  - ASTHMA [None]
